FAERS Safety Report 7544159-6 (Version None)
Quarter: 2011Q2

REPORT INFORMATION
  Report Type: 
  Country: None (occurrence: None)
  Receive Date: 20110613
  Receipt Date: 20070606
  Transmission Date: 20111010
  Serious: Yes (Hospitalization, Other)
  Sender: FDA-Public Use
  Company Number: PHFR2007GB00985

PATIENT
  Sex: Female

DRUGS (7)
  1. CLOZAPINE [Suspect]
     Indication: SCHIZOPHRENIA
     Dosage: 300 MG, DAILY
     Route: 048
     Dates: start: 19980701
  2. ROSUVASTATIN [Concomitant]
     Dosage: 10 MG, DAILY
     Route: 048
  3. SENNA-MINT WAF [Concomitant]
     Dosage: 2 DF, DAILY
     Route: 048
  4. ADALAT CC [Concomitant]
     Indication: HYPERTENSION
     Dosage: 60 MG, DAILY
     Route: 048
  5. CALCEOS [Concomitant]
     Dosage: 2 DF, DAILY
     Route: 048
  6. FOSINOPRIL SODIUM [Concomitant]
     Indication: HYPERTENSION
     Dosage: 10 MG, DAILY
     Route: 048
  7. MIXTARD HUMAN 70/30 [Concomitant]
     Indication: DIABETES MELLITUS
     Dosage: 34 DF, DAILY
     Route: 058

REACTIONS (7)
  - LOWER RESPIRATORY TRACT INFECTION [None]
  - CONFUSIONAL STATE [None]
  - BLOOD BILIRUBIN ABNORMAL [None]
  - BLOOD CREATININE INCREASED [None]
  - BLOOD THYROID STIMULATING HORMONE DECREASED [None]
  - WHITE BLOOD CELL COUNT INCREASED [None]
  - C-REACTIVE PROTEIN INCREASED [None]
